FAERS Safety Report 12505318 (Version 2)
Quarter: 2016Q3

REPORT INFORMATION
  Report Type: Report from Study
  Country: BR (occurrence: BR)
  Receive Date: 20160628
  Receipt Date: 20160715
  Transmission Date: 20161109
  Serious: Yes (Other)
  Sender: FDA-Public Use
  Company Number: PHHY2016BR087820

PATIENT
  Age: 53 Year
  Sex: Female
  Weight: 52 kg

DRUGS (3)
  1. ACLASTA [Suspect]
     Active Substance: ZOLEDRONIC ACID
     Indication: OSTEOPENIA
  2. OSTEONUTRI [Concomitant]
     Indication: OSTEOPENIA
     Dosage: 1 DF, QD
     Route: 048
  3. ACLASTA [Suspect]
     Active Substance: ZOLEDRONIC ACID
     Indication: OSTEOPOROSIS
     Dosage: 5 MG/100 ML, Q12MO
     Route: 042
     Dates: start: 20160617

REACTIONS (2)
  - Vein rupture [Recovered/Resolved]
  - Fear [Unknown]

NARRATIVE: CASE EVENT DATE: 20160617
